FAERS Safety Report 6804818-7 (Version None)
Quarter: 2010Q2

REPORT INFORMATION
  Report Type: 
  Country: None (occurrence: None)
  Receive Date: 20100628
  Receipt Date: 20070608
  Transmission Date: 20101027
  Serious: No
  Sender: FDA-Public Use
  Company Number: US-PFIZER INC-2007047116

PATIENT
  Sex: Female
  Weight: 54 kg

DRUGS (9)
  1. XALATAN [Suspect]
     Indication: GLAUCOMA
     Dates: start: 20020101
  2. METOPROLOL [Concomitant]
  3. VALSARTAN [Concomitant]
  4. DILTIAZEM [Concomitant]
  5. LIPITOR [Concomitant]
  6. ZETIA [Concomitant]
  7. SYNTHROID [Concomitant]
  8. PLAVIX [Concomitant]
  9. COSOPT [Concomitant]

REACTIONS (2)
  - CHROMATOPSIA [None]
  - VISUAL IMPAIRMENT [None]
